FAERS Safety Report 24991557 (Version 1)
Quarter: 2025Q1

REPORT INFORMATION
  Report Type: Spontaneous
  Country: US (occurrence: US)
  Receive Date: 20250220
  Receipt Date: 20250220
  Transmission Date: 20250409
  Serious: Yes (Other)
  Sender: BRISTOL-MYERS SQUIBB COMPANY
  Company Number: US-BRISTOL-MYERS SQUIBB COMPANY-2025-024832

PATIENT
  Sex: Male

DRUGS (1)
  1. ELIQUIS [Suspect]
     Active Substance: APIXABAN
     Indication: Product used for unknown indication
     Dates: start: 2023

REACTIONS (6)
  - Increased tendency to bruise [Unknown]
  - Skin laceration [Unknown]
  - Coagulation time prolonged [Unknown]
  - Epistaxis [Unknown]
  - Mouth haemorrhage [Unknown]
  - Rhinalgia [Unknown]

NARRATIVE: CASE EVENT DATE: 20250213
